FAERS Safety Report 17918184 (Version 2)
Quarter: 2020Q4

REPORT INFORMATION
  Report Type: Report from Study
  Country: US (occurrence: US)
  Receive Date: 20200619
  Receipt Date: 20201007
  Transmission Date: 20210113
  Serious: Yes (Other)
  Sender: FDA-Public Use
  Company Number: US-HLS-202000325

PATIENT
  Age: 32 Year
  Sex: Female
  Weight: 154 kg

DRUGS (6)
  1. MIRTAZAPINE. [Concomitant]
     Active Substance: MIRTAZAPINE
     Indication: ANXIETY
     Dosage: 15-30 MG QID
     Route: 048
     Dates: start: 20200323
  2. BUPROPION. [Concomitant]
     Active Substance: BUPROPION
     Indication: ANXIETY
     Route: 048
  3. MIRTAZAPINE. [Concomitant]
     Active Substance: MIRTAZAPINE
     Indication: INSOMNIA
     Dosage: 15-30 MG QID
     Route: 048
     Dates: start: 20200323
  4. TRAZODONE [Concomitant]
     Active Substance: TRAZODONE HYDROCHLORIDE
     Indication: INSOMNIA
     Dosage: 30-100 MG QID
     Route: 048
  5. CLOZAPINE. [Suspect]
     Active Substance: CLOZAPINE
     Indication: PRODUCT USED FOR UNKNOWN INDICATION
     Route: 065
  6. MIRTAZAPINE. [Concomitant]
     Active Substance: MIRTAZAPINE
     Indication: DEPRESSION
     Dosage: 15-30 MG QID
     Route: 048
     Dates: start: 20200323

REACTIONS (4)
  - Neutrophil count increased [Recovered/Resolved]
  - Gastrointestinal injury [Unknown]
  - Treatment noncompliance [Unknown]
  - Mental impairment [Unknown]

NARRATIVE: CASE EVENT DATE: 20200308
